FAERS Safety Report 9967130 (Version 1)
Quarter: 2014Q1

REPORT INFORMATION
  Report Type: Report from Study
  Country: US (occurrence: US)
  Receive Date: 20140305
  Receipt Date: 20140305
  Transmission Date: 20141002
  Serious: No
  Sender: FDA-Public Use
  Company Number: US-ABBVIE-13P-163-1138340-00

PATIENT
  Age: 34 Year
  Sex: Female
  Weight: 52.21 kg

DRUGS (9)
  1. HUMIRA [Suspect]
     Indication: PSORIASIS
     Dates: start: 20130822, end: 20130822
  2. HUMIRA [Suspect]
  3. FERROUS SULFATE [Concomitant]
     Indication: IRON DEFICIENCY
  4. UNKNOWN BIRTH CONTROL PILL [Concomitant]
     Indication: CONTRACEPTION
  5. LEVOTHYROXINE [Concomitant]
     Indication: HYPOTHYROIDISM
  6. CLOBEX [Concomitant]
     Indication: PSORIASIS
  7. MULTIVITAMIN [Concomitant]
     Indication: VITAMIN SUPPLEMENTATION
  8. CALCIUM + VIT D [Concomitant]
     Indication: VITAMIN SUPPLEMENTATION
  9. OMEGA [Concomitant]
     Indication: VITAMIN SUPPLEMENTATION

REACTIONS (1)
  - Headache [Recovering/Resolving]
